FAERS Safety Report 10750227 (Version 1)
Quarter: 2015Q1

REPORT INFORMATION
  Report Type: Spontaneous
  Country: DE (occurrence: DE)
  Receive Date: 20150129
  Receipt Date: 20150129
  Transmission Date: 20150721
  Serious: Yes (Other)
  Sender: FDA-Public Use
  Company Number: ALCN2014DE006969

PATIENT
  Sex: Female
  Weight: 58 kg

DRUGS (9)
  1. DEXASINE SE [Suspect]
     Active Substance: DEXAMETHASONE SODIUM PHOSPHATE
     Dosage: 1 DF, 5QD
     Route: 047
     Dates: start: 20130706, end: 20130807
  2. FLOXAL [Concomitant]
     Active Substance: OFLOXACIN
     Dosage: 1 DF, 5QD
     Dates: start: 20130704, end: 20130807
  3. LUCENTIS [Concomitant]
     Active Substance: RANIBIZUMAB
     Dosage: 1 DF, ONCE/SINGLE
     Route: 031
  4. DEXA EDO [Concomitant]
     Active Substance: DEXAMETHASONE SODIUM PHOSPHATE
     Dosage: 1 DF, 5QD
     Dates: start: 20130704, end: 20130710
  5. DEXA-GENTAMICIN [Concomitant]
     Dosage: 1 DF, 5QD
     Dates: start: 20130613, end: 20130619
  6. DEXASINE SE [Suspect]
     Active Substance: DEXAMETHASONE SODIUM PHOSPHATE
     Dosage: 1 DF, 5QD
     Route: 047
     Dates: start: 20130726, end: 20130805
  7. LUCENTIS [Concomitant]
     Active Substance: RANIBIZUMAB
     Dosage: 1 DF, ONCE/SINGLE
     Route: 031
  8. DEXASINE SE [Suspect]
     Active Substance: DEXAMETHASONE SODIUM PHOSPHATE
     Dosage: UNK
     Route: 047
     Dates: start: 20130801, end: 20130805
  9. LUCENTIS [Concomitant]
     Active Substance: RANIBIZUMAB
     Dosage: 1 DF, ONCE/SINGLE
     Route: 031

REACTIONS (2)
  - Visual acuity reduced [Not Recovered/Not Resolved]
  - Lenticular opacities [Not Recovered/Not Resolved]
